FAERS Safety Report 24158902 (Version 4)
Quarter: 2024Q3

REPORT INFORMATION
  Report Type: Spontaneous
  Country: US (occurrence: US)
  Receive Date: 20240731
  Receipt Date: 20240822
  Transmission Date: 20241017
  Serious: No
  Sender: ROCHE
  Company Number: US-ROCHE-10000035771

PATIENT
  Sex: Female
  Weight: 72.12 kg

DRUGS (12)
  1. OCREVUS [Suspect]
     Active Substance: OCRELIZUMAB
     Indication: Multiple sclerosis
     Route: 065
  2. LISINOPRIL [Concomitant]
     Active Substance: LISINOPRIL
  3. AJOVY [Concomitant]
     Active Substance: FREMANEZUMAB-VFRM
  4. UBRELVY [Concomitant]
     Active Substance: UBROGEPANT
     Indication: Migraine
  5. PROPRANOLOL [Concomitant]
     Active Substance: PROPRANOLOL HYDROCHLORIDE
  6. PRISTIQ EXTENDED-RELEASE [Concomitant]
     Active Substance: DESVENLAFAXINE SUCCINATE
  7. BUSPAR [Concomitant]
     Active Substance: BUSPIRONE HYDROCHLORIDE
  8. VITAMIN D [Concomitant]
     Active Substance: VITAMIN D NOS
  9. AMINO ACIDS [Concomitant]
     Active Substance: AMINO ACIDS
  10. DIETARY SUPPLEMENT [Concomitant]
     Active Substance: DIETARY SUPPLEMENT
  11. LEVOCARNITINE [Concomitant]
     Active Substance: LEVOCARNITINE
  12. MAGNESIUM [Concomitant]
     Active Substance: MAGNESIUM

REACTIONS (7)
  - Diverticulitis [Recovered/Resolved]
  - COVID-19 [Unknown]
  - Optic neuritis [Unknown]
  - Neuritis [Not Recovered/Not Resolved]
  - Illness [Unknown]
  - Cerebral disorder [Unknown]
  - Chiasma syndrome [Not Recovered/Not Resolved]
